FAERS Safety Report 7037886-0 (Version None)
Quarter: 2010Q4

REPORT INFORMATION
  Report Type: 
  Country: None (occurrence: None)
  Receive Date: 20101011
  Receipt Date: 20100909
  Transmission Date: 20110411
  Serious: No
  Sender: FDA-Public Use
  Company Number: US-BAYER-201026539NA

PATIENT

DRUGS (1)
  1. ULTRAVIST 300 [Suspect]
     Indication: PRODUCT USED FOR UNKNOWN INDICATION

REACTIONS (3)
  - PRURITUS [None]
  - THROAT IRRITATION [None]
  - URTICARIA [None]
